FAERS Safety Report 7694109-7 (Version None)
Quarter: 2011Q3

REPORT INFORMATION
  Report Type: 
  Country: None (occurrence: None)
  Receive Date: 20110816
  Receipt Date: 20110803
  Transmission Date: 20111222
  Serious: Yes (Death, Life-Threatening)
  Sender: FDA-Public Use
  Company Number: 2008-03854

PATIENT
  Age: 77 Year
  Sex: Male
  Weight: 55 kg

DRUGS (14)
  1. PANTOPRAZOLE [Concomitant]
  2. FILGRASTIM (FILGRASTIM) [Concomitant]
  3. PLATELETS, HUMAN BLOOD (PLATELETS, HUMAN BLOOD) [Concomitant]
  4. VELCADE [Suspect]
     Indication: MULTIPLE MYELOMA
     Dosage: 2.2 MG, INTRAVENOUS
     Route: 042
     Dates: start: 20080929, end: 20081002
  5. IMMUNE GLOBULIN INTRAVENOUS (HUMAN) [Concomitant]
  6. LEVOFLOXACIN [Concomitant]
  7. BENFOTIAMINE (BENFOTIAMINE) [Concomitant]
  8. SODIUM CHLORIDE [Concomitant]
  9. ERYTHROPOIETIN (ERYTHROPOIETIN) [Concomitant]
  10. ALLOPURINOL [Concomitant]
  11. ZOLEDRONIC ACID [Concomitant]
  12. POTASSIUM CHLORIDE [Concomitant]
  13. METOPROLOL TARTRATE [Concomitant]
  14. CALCIUM CARBONATE [Concomitant]

REACTIONS (11)
  - BRONCHITIS [None]
  - LEUKAEMIA PLASMACYTIC [None]
  - DISEASE PROGRESSION [None]
  - ANAEMIA [None]
  - NEUTROPENIA [None]
  - SEPSIS [None]
  - HYPOKALAEMIA [None]
  - ARRHYTHMIA SUPRAVENTRICULAR [None]
  - THROMBOCYTOPENIA [None]
  - PNEUMONIA [None]
  - HYPERCALCAEMIA [None]
